FAERS Safety Report 19481577 (Version 1)
Quarter: 2021Q3

REPORT INFORMATION
  Report Type: Spontaneous
  Country: CH (occurrence: CH)
  Receive Date: 20210701
  Receipt Date: 20210701
  Transmission Date: 20211014
  Serious: Yes (Other)
  Sender: FDA-Public Use
  Company Number: CH-GLAXOSMITHKLINE-CH2021137783

PATIENT
  Age: 57 Year
  Sex: Female

DRUGS (21)
  1. LAMICTAL [Suspect]
     Active Substance: LAMOTRIGINE
     Indication: EPILEPSY
     Dosage: 12.5 MG, BID
     Route: 048
     Dates: start: 20210511, end: 20210525
  2. LAMICTAL [Interacting]
     Active Substance: LAMOTRIGINE
     Dosage: 25 MG, QD
     Route: 048
     Dates: start: 20210527, end: 20210527
  3. DAPAGLIFLOZINE [Concomitant]
     Active Substance: DAPAGLIFLOZIN
     Indication: EPILEPSY
     Dosage: UNK
     Route: 065
  4. PREGABALIN. [Concomitant]
     Active Substance: PREGABALIN
     Indication: EPILEPSY
     Dosage: UNK
     Route: 065
  5. TORASEMIDE [Concomitant]
     Active Substance: TORSEMIDE
     Indication: EPILEPSY
     Dosage: UNK
     Route: 065
  6. PHENPROCOUMON [Concomitant]
     Active Substance: PHENPROCOUMON
     Indication: EPILEPSY
     Dosage: UNK
     Route: 065
  7. VALPROATE [Interacting]
     Active Substance: VALPROIC ACID
     Indication: EPILEPSY
     Dosage: 800 MG, BID
     Route: 065
     Dates: start: 202010
  8. AMILORIDE HYDROCHLORIDE + HYDROCHLOROTHIAZIDE [Concomitant]
     Indication: EPILEPSY
     Dosage: UNK
     Route: 065
  9. ATORVASTATIN [Concomitant]
     Active Substance: ATORVASTATIN
     Indication: EPILEPSY
     Dosage: UNK
     Route: 065
  10. LAMICTAL [Interacting]
     Active Substance: LAMOTRIGINE
     Dosage: 25 MG, BID
     Route: 048
     Dates: start: 20210526, end: 20210526
  11. CEFTRIAXONE. [Suspect]
     Active Substance: CEFTRIAXONE
     Indication: RESPIRATORY FAILURE
     Dosage: 2 G, QD
     Route: 042
     Dates: start: 20210525, end: 20210525
  12. METOLAZONE. [Concomitant]
     Active Substance: METOLAZONE
     Indication: EPILEPSY
     Dosage: UNK
     Route: 065
  13. LORAZEPAM. [Concomitant]
     Active Substance: LORAZEPAM
     Indication: EPILEPSY
     Dosage: UNK
     Route: 065
  14. METOPROLOL TARTRATE. [Concomitant]
     Active Substance: METOPROLOL TARTRATE
     Indication: EPILEPSY
     Dosage: UNK
     Route: 065
  15. TAVANIC [Suspect]
     Active Substance: LEVOFLOXACIN
     Dosage: 250 MG, QD
     Route: 048
     Dates: start: 20210527, end: 20210531
  16. VIMPAT [Suspect]
     Active Substance: LACOSAMIDE
     Indication: EPILEPSY
     Dosage: 100 MG, BID
     Route: 048
     Dates: start: 20210527, end: 20210530
  17. TAVANIC [Suspect]
     Active Substance: LEVOFLOXACIN
     Indication: RESPIRATORY FAILURE
     Dosage: 500 MG, TOTAL, LEVOFLOXACIN: IV 500 MG THE NIGHT OF 26?27.05.21
     Route: 042
     Dates: start: 20210526, end: 20210526
  18. CLOBAZAM. [Suspect]
     Active Substance: CLOBAZAM
     Indication: EPILEPSY
     Dosage: 10 MG, BID
     Route: 048
     Dates: start: 20210511, end: 20210530
  19. POTASSIUM CHLORIDE. [Concomitant]
     Active Substance: POTASSIUM CHLORIDE
     Indication: EPILEPSY
     Dosage: UNK
     Route: 065
  20. CLONAZEPAM. [Concomitant]
     Active Substance: CLONAZEPAM
     Indication: EPILEPSY
     Dosage: UNK
     Route: 065
     Dates: start: 20210530
  21. EPLERENONE. [Concomitant]
     Active Substance: EPLERENONE
     Indication: EPILEPSY
     Dosage: UNK
     Route: 065

REACTIONS (2)
  - Rash maculo-papular [Recovering/Resolving]
  - Drug interaction [Recovering/Resolving]

NARRATIVE: CASE EVENT DATE: 20210511
